FAERS Safety Report 9805241 (Version 1)
Quarter: 2014Q1

REPORT INFORMATION
  Report Type: Spontaneous
  Country: US (occurrence: None)
  Receive Date: 20140106
  Receipt Date: 20140106
  Transmission Date: 20141002
  Serious: Yes (Hospitalization)
  Sender: FDA-Public Use
  Company Number: US-014163

PATIENT
  Age: 17 Month
  Sex: Male

DRUGS (13)
  1. DDAVP [Suspect]
     Indication: HYPERNATRAEMIA
     Dosage: TWO DOSES NASAL
  2. DDAVP [Suspect]
     Indication: DIABETES INSIPIDUS
     Route: 048
     Dates: start: 20131127
  3. SABRIL [Suspect]
     Indication: INFANTILE SPASMS
     Dosage: 1000MG QD ORAL)
     Route: 048
     Dates: start: 20131008
  4. KEPPRA [Concomitant]
  5. TOPAMAX [Concomitant]
  6. PREDNISOLONE [Concomitant]
  7. POLYETHYLENE [Concomitant]
  8. ZONISAMIDE [Concomitant]
  9. ACETAMINOPHEN [Concomitant]
  10. DIAZEPAM [Concomitant]
  11. IBUPROFEN [Concomitant]
  12. ONDANSETRON [Concomitant]
  13. OXYCODONE [Concomitant]

REACTIONS (7)
  - Hyponatraemia [None]
  - Shunt malfunction [None]
  - Hypoglycaemia [None]
  - Metabolic acidosis [None]
  - Myoclonic epilepsy [None]
  - Decreased appetite [None]
  - Pain [None]
